FAERS Safety Report 23340236 (Version 1)
Quarter: 2023Q4

REPORT INFORMATION
  Report Type: Spontaneous
  Country: US (occurrence: US)
  Receive Date: 20231227
  Receipt Date: 20231227
  Transmission Date: 20240109
  Serious: No
  Sender: FDA-Public Use
  Company Number: US-BRISTOL-MYERS SQUIBB COMPANY-2023-172816

PATIENT
  Sex: Female

DRUGS (1)
  1. OZANIMOD [Suspect]
     Active Substance: OZANIMOD
     Indication: Multiple sclerosis
     Route: 048

REACTIONS (2)
  - Drug ineffective [Unknown]
  - Progressive multiple sclerosis [Unknown]
